FAERS Safety Report 21179903 (Version 1)
Quarter: 2022Q3

REPORT INFORMATION
  Report Type: Spontaneous
  Country: US (occurrence: None)
  Receive Date: 20220805
  Receipt Date: 20220805
  Transmission Date: 20221027
  Serious: No
  Sender: FDA-Public Use
  Company Number: None

PATIENT
  Age: 36 Year
  Sex: Female
  Weight: 62.4 kg

DRUGS (1)
  1. VYEPTI [Suspect]
     Active Substance: EPTINEZUMAB-JJMR
     Indication: Migraine
     Dosage: OTHER FREQUENCY : Q 84 DAYS;?
     Route: 041
     Dates: start: 20220505

REACTIONS (3)
  - Cough [None]
  - Chest discomfort [None]
  - Hypoaesthesia [None]

NARRATIVE: CASE EVENT DATE: 20220805
